FAERS Safety Report 15379222 (Version 1)
Quarter: 2018Q3

REPORT INFORMATION
  Report Type: Report from Study
  Country: US (occurrence: US)
  Receive Date: 20180913
  Receipt Date: 20180913
  Transmission Date: 20181010
  Serious: Yes (Other)
  Sender: FDA-Public Use
  Company Number: US-BAYER-2018-149125

PATIENT
  Age: 76 Year
  Sex: Male

DRUGS (12)
  1. STIVARGA [Suspect]
     Active Substance: REGORAFENIB
     Indication: COLORECTAL CANCER
     Dosage: 160 MG, QD 21 DAYS ON FOLLOWED BY 7DAYS OFF CYCLE
     Route: 048
     Dates: start: 20180801
  2. MINOCYCLINE [Concomitant]
     Active Substance: MINOCYCLINE\MINOCYCLINE HYDROCHLORIDE
  3. SULFASALAZINE. [Concomitant]
     Active Substance: SULFASALAZINE
  4. BIOTIN [Concomitant]
     Active Substance: BIOTIN
  5. LORATADINE. [Concomitant]
     Active Substance: LORATADINE
  6. METOPROLOL SUCCINATE. [Concomitant]
     Active Substance: METOPROLOL SUCCINATE
  7. COMPAZINE [Concomitant]
     Active Substance: PROCHLORPERAZINE MALEATE
  8. HYDROCODONE [Concomitant]
     Active Substance: HYDROCODONE
  9. STIVARGA [Suspect]
     Active Substance: REGORAFENIB
     Indication: COLORECTAL CANCER
     Dosage: 160 MG, QD 21 DAYS ON FOLLOWED BY 7DAYS OFF CYCLE
     Route: 048
     Dates: start: 20180801
  10. ATIVAN [Concomitant]
     Active Substance: LORAZEPAM
  11. TRAMADOL. [Concomitant]
     Active Substance: TRAMADOL
  12. XARELTO [Concomitant]
     Active Substance: RIVAROXABAN

REACTIONS (8)
  - Weight decreased [Not Recovered/Not Resolved]
  - Decreased appetite [None]
  - Blood potassium increased [Not Recovered/Not Resolved]
  - Dry mouth [Not Recovered/Not Resolved]
  - Fatigue [None]
  - Blood iron decreased [Recovering/Resolving]
  - Back pain [None]
  - Rash erythematous [Not Recovered/Not Resolved]
